FAERS Safety Report 10079329 (Version 1)
Quarter: 2014Q2

REPORT INFORMATION
  Report Type: Spontaneous
  Country: US (occurrence: US)
  Receive Date: 20140415
  Receipt Date: 20140415
  Transmission Date: 20141212
  Serious: Yes (Other)
  Sender: FDA-Public Use
  Company Number: PHEH2014US007081

PATIENT
  Age: 25 Year
  Sex: Female
  Weight: 78.9 kg

DRUGS (2)
  1. GILENYA [Suspect]
     Indication: RELAPSING-REMITTING MULTIPLE SCLEROSIS
     Dosage: 0.5 MG, QD
     Route: 048
  2. GILENYA [Suspect]
     Dosage: 0.5 MG, QD
     Route: 048
     Dates: start: 201308, end: 201402

REACTIONS (3)
  - Abortion spontaneous [Unknown]
  - Macular oedema [Unknown]
  - Maternal exposure during pregnancy [Unknown]
